FAERS Safety Report 6791290-9 (Version None)
Quarter: 2010Q2

REPORT INFORMATION
  Report Type: 
  Country: None (occurrence: None)
  Receive Date: 20100624
  Receipt Date: 20100618
  Transmission Date: 20101027
  Serious: Yes (Other)
  Sender: FDA-Public Use
  Company Number: CHPA2010JP10063

PATIENT
  Age: 86 Year
  Sex: Female

DRUGS (13)
  1. TAVEGYL (NCH) [Suspect]
     Indication: PRURITUS
     Dosage: 2 MG, QD
     Route: 048
     Dates: start: 20100525
  2. SLOW-FE (NCH) [Suspect]
     Dosage: 50 MG, QD
     Route: 048
     Dates: start: 20100525
  3. ALLELOCK [Suspect]
     Dosage: 5 MG, QD
     Route: 048
     Dates: start: 20100525
  4. LANIRAPID [Suspect]
     Dosage: 0.05 MG, QD
     Route: 048
     Dates: start: 20100525
  5. LASIX [Suspect]
     Dosage: 40 MG, QD
     Route: 048
     Dates: start: 20100525
  6. ALDACTONE [Suspect]
     Dosage: 2 MG, QD
     Route: 048
     Dates: start: 20100525
  7. ALDACTONE [Suspect]
     Dosage: 4 MG, QD
     Route: 048
  8. DENOPAMINE [Suspect]
     Dosage: 10 MG, QD
     Route: 048
     Dates: start: 20100525
  9. DENOPAMINE [Suspect]
     Dosage: 20 MG, QD
     Route: 048
  10. WARFARIN [Suspect]
     Dosage: 1 MG, QD
     Route: 048
     Dates: start: 20100525
  11. URINORM [Suspect]
     Dosage: 50 MG, QD
     Route: 048
     Dates: start: 20100525
  12. TROXSIN [Suspect]
     Dosage: 100 MG, QD
     Route: 048
     Dates: start: 20100525
  13. MAGMITT KENEI [Suspect]
     Dosage: 330 MG, QD
     Route: 048
     Dates: start: 20100525

REACTIONS (2)
  - CARDIAC FAILURE [None]
  - OEDEMA [None]
